FAERS Safety Report 6105712-X (Version None)
Quarter: 2009Q1

REPORT INFORMATION
  Report Type: 
  Country: None (occurrence: None)
  Receive Date: 20090304
  Receipt Date: 20090304
  Transmission Date: 20090719
  Serious: Yes (Hospitalization)
  Sender: FDA-Public Use
  Company Number: None

PATIENT
  Sex: Female
  Weight: 82.5547 kg

DRUGS (7)
  1. LAPATINIB, 250MG, GLAXOSMITHKLINE [Suspect]
     Indication: BREAST CANCER METASTATIC
     Dosage: 2000MG BID PO
     Route: 048
     Dates: start: 20081219
  2. DIPHENOXYLATE [Concomitant]
  3. OPIUM [Concomitant]
  4. ONDANSETRON [Concomitant]
  5. BIOTIN [Concomitant]
  6. VITAMIN B-12 [Concomitant]
  7. CALCIUM/VITAMIN D [Concomitant]

REACTIONS (2)
  - BLOOD BILIRUBIN INCREASED [None]
  - GASTROENTERITIS VIRAL [None]
